FAERS Safety Report 23483896 (Version 1)
Quarter: 2024Q1

REPORT INFORMATION
  Report Type: Spontaneous
  Country: US (occurrence: US)
  Receive Date: 20240205
  Receipt Date: 20240205
  Transmission Date: 20240410
  Serious: No
  Sender: FDA-Public Use
  Company Number: US-BAUSCHBL-2024BNL001108

PATIENT
  Age: 74 Year
  Sex: Male

DRUGS (1)
  1. PREDNISOLONE SODIUM PHOSPHATE\SULFACETAMIDE SODIUM [Suspect]
     Active Substance: PREDNISOLONE SODIUM PHOSPHATE\SULFACETAMIDE SODIUM
     Indication: Postoperative care
     Dosage: FOR OVER 20 YEARS
     Route: 047
     Dates: start: 2004

REACTIONS (2)
  - Ocular discomfort [Unknown]
  - Purulent discharge [Unknown]
